FAERS Safety Report 9602937 (Version 1)
Quarter: 2013Q4

REPORT INFORMATION
  Report Type: Spontaneous
  Country: US (occurrence: None)
  Receive Date: 20131003
  Receipt Date: 20131003
  Transmission Date: 20140711
  Serious: Yes (Other)
  Sender: FDA-Public Use
  Company Number: US-SEPTODONT-201301528

PATIENT
  Age: 69 Year
  Sex: Male

DRUGS (5)
  1. XYLOCAINE 2% WITH EPINPHRINE [Suspect]
     Indication: LOCAL ANAESTHESIA
     Dosage: DENTAL
  2. CITANEST [Suspect]
     Indication: LOCAL ANAESTHESIA
     Dosage: DENTAL
  3. EMLA(LIDOCAINE; PRILOCAINE) [Concomitant]
  4. ZOCAR(SIMVASTATINE) [Concomitant]
  5. THYROID SUPPLEMENT [Concomitant]

REACTIONS (3)
  - Vomiting [None]
  - Drug hypersensitivity [None]
  - VIIth nerve paralysis [None]
